FAERS Safety Report 13675079 (Version 2)
Quarter: 2017Q3

REPORT INFORMATION
  Report Type: Spontaneous
  Country: US (occurrence: US)
  Receive Date: 20170621
  Receipt Date: 20170724
  Transmission Date: 20171127
  Serious: Yes (Death, Other)
  Sender: FDA-Public Use
  Company Number: US-CONCORDIA LABORATORIES INC.-PIN-2017-00021

PATIENT
  Age: 72 Year
  Sex: Male
  Weight: 97.5 kg

DRUGS (1)
  1. PHOTOFRIN [Suspect]
     Active Substance: PORFIMER SODIUM
     Indication: SQUAMOUS CELL CARCINOMA
     Route: 065
     Dates: start: 2017

REACTIONS (3)
  - Bronchial injury [Fatal]
  - Vascular injury [Fatal]
  - Haemoptysis [Fatal]

NARRATIVE: CASE EVENT DATE: 20170502
